FAERS Safety Report 19031871 (Version 1)
Quarter: 2021Q1

REPORT INFORMATION
  Report Type: Spontaneous
  Country: US (occurrence: US)
  Receive Date: 20210319
  Receipt Date: 20210319
  Transmission Date: 20210420
  Serious: No
  Sender: FDA-Public Use
  Company Number: US-PFIZER INC-2021154177

PATIENT
  Age: 60 Year
  Sex: Male

DRUGS (1)
  1. SULFASALAZINE. [Suspect]
     Active Substance: SULFASALAZINE
     Dosage: UNK

REACTIONS (5)
  - Product colour issue [Unknown]
  - Product quality issue [Unknown]
  - Chromaturia [Unknown]
  - Drug ineffective [Unknown]
  - Product size issue [Unknown]
